FAERS Safety Report 21913955 (Version 3)
Quarter: 2023Q1

REPORT INFORMATION
  Report Type: Spontaneous
  Country: JP (occurrence: JP)
  Receive Date: 20230125
  Receipt Date: 20230310
  Transmission Date: 20230417
  Serious: No
  Sender: FDA-Public Use
  Company Number: JP-KYOWAKIRIN-2023AKK000697

PATIENT
  Age: 54 Year
  Sex: Female

DRUGS (11)
  1. DARBEPOETIN ALFA [Suspect]
     Active Substance: DARBEPOETIN ALFA
     Indication: Nephrogenic anaemia
     Dosage: 40 MICROGRAM, QWK
     Route: 042
     Dates: start: 202210, end: 202210
  2. DARBEPOETIN ALFA [Suspect]
     Active Substance: DARBEPOETIN ALFA
     Dosage: 40 MICROGRAM, QWK
     Route: 042
     Dates: end: 20221207
  3. DARBEPOETIN ALFA [Suspect]
     Active Substance: DARBEPOETIN ALFA
     Dosage: 60 MICROGRAM, QWK
     Route: 042
     Dates: end: 20230118
  4. DARBEPOETIN ALFA [Suspect]
     Active Substance: DARBEPOETIN ALFA
     Dosage: 10 MICROGRAM, QWK
     Route: 042
  5. NORVASC [Concomitant]
     Active Substance: AMLODIPINE BESYLATE
     Indication: Hypertension
     Dosage: UNK, QD
     Route: 048
  6. LANSOPRAZOLE [Concomitant]
     Active Substance: LANSOPRAZOLE
     Indication: Gastrooesophageal reflux disease
     Dosage: 15 MG, QD
     Route: 048
  7. ALLEGRA ALLERGY [Concomitant]
     Active Substance: FEXOFENADINE HYDROCHLORIDE
     Indication: Rhinitis allergic
     Dosage: 60 MG, BID
     Route: 048
  8. FERRIC CITRATE ANHYDROUS [Concomitant]
     Active Substance: FERRIC CITRATE ANHYDROUS
     Indication: Iron deficiency
     Dosage: 500 MG, QD
     Route: 048
     Dates: start: 20220706
  9. AMITIZA [Concomitant]
     Active Substance: LUBIPROSTONE
     Indication: Constipation
     Dosage: 24 UG, BID
     Route: 048
  10. CELIPROLOL [Concomitant]
     Active Substance: CELIPROLOL
     Indication: Hypertension
     Dosage: 400 MG, QD
     Route: 048
  11. URSO 1A PHARMA [Concomitant]
     Indication: Cholelithiasis
     Dosage: 100 MG, TID
     Route: 048

REACTIONS (1)
  - Drug ineffective [Unknown]

NARRATIVE: CASE EVENT DATE: 20221019
